FAERS Safety Report 6127606-6 (Version None)
Quarter: 2009Q1

REPORT INFORMATION
  Report Type: 
  Country: None (occurrence: None)
  Receive Date: 20090319
  Receipt Date: 20090319
  Transmission Date: 20090719
  Serious: No
  Sender: FDA-Public Use
  Company Number: None

PATIENT
  Age: 39 Year
  Sex: Male
  Weight: 114.76 kg

DRUGS (1)
  1. LISINOPRIL [Suspect]
     Indication: BLOOD PRESSURE MANAGEMENT
     Dosage: 20MG 1 PER DAY PO;  40MG 2 PER DAY PO
     Route: 048
     Dates: start: 20090305, end: 20090318

REACTIONS (3)
  - BLOOD PRESSURE SYSTOLIC INCREASED [None]
  - DRUG INEFFECTIVE [None]
  - THERAPEUTIC RESPONSE UNEXPECTED WITH DRUG SUBSTITUTION [None]
